FAERS Safety Report 8385754-4 (Version None)
Quarter: 2012Q2

REPORT INFORMATION
  Report Type: 
  Country: None (occurrence: None)
  Receive Date: 20120523
  Receipt Date: 20120523
  Transmission Date: 20120825
  Serious: Yes (Hospitalization)
  Sender: FDA-Public Use
  Company Number: None

PATIENT
  Age: 92 Year
  Sex: Male
  Weight: 59 kg

DRUGS (1)
  1. WARFARIN SODIUM [Suspect]
     Indication: EMBOLISM
     Dosage: 2MG EVERY DAY PO
     Route: 048
     Dates: start: 20120405, end: 20120518

REACTIONS (2)
  - ANAEMIA [None]
  - INTERNATIONAL NORMALISED RATIO INCREASED [None]
